FAERS Safety Report 4725715-7 (Version None)
Quarter: 2005Q3

REPORT INFORMATION
  Report Type: 
  Country: None (occurrence: None)
  Receive Date: 20050727
  Receipt Date: 20050328
  Transmission Date: 20060218
  Serious: Yes (Hospitalization, Other)
  Sender: FDA-Public Use
  Company Number: US-NOVOPROD-243164

PATIENT
  Age: 44 Year
  Sex: Male

DRUGS (1)
  1. NOVOLOG MIX 70/30 [Suspect]
     Indication: INSULIN-REQUIRING TYPE II DIABETES MELLITUS
     Dosage: 35 IU, QD
     Route: 058
     Dates: start: 20050301

REACTIONS (6)
  - ALCOHOL USE [None]
  - BLOOD GLUCOSE DECREASED [None]
  - CONVULSION [None]
  - DIABETES MELLITUS INADEQUATE CONTROL [None]
  - GRAND MAL CONVULSION [None]
  - WRONG TECHNIQUE IN DRUG USAGE PROCESS [None]
